FAERS Safety Report 15897070 (Version 3)
Quarter: 2019Q2

REPORT INFORMATION
  Report Type: Spontaneous
  Country: US (occurrence: US)
  Receive Date: 20190131
  Receipt Date: 20190513
  Transmission Date: 20190711
  Serious: Yes (Death, Hospitalization, Other)
  Sender: FDA-Public Use
  Company Number: US-009507513-1901USA011710

PATIENT
  Sex: Male
  Weight: 72.56 kg

DRUGS (2)
  1. JANUVIA [Suspect]
     Active Substance: SITAGLIPTIN PHOSPHATE
     Indication: PRODUCT USED FOR UNKNOWN INDICATION
     Dosage: 100 MILLIGRAM, QD
     Route: 048
     Dates: start: 20140424, end: 201505
  2. VICTOZA [Suspect]
     Active Substance: LIRAGLUTIDE
     Indication: PRODUCT USED FOR UNKNOWN INDICATION
     Dosage: 18MG/3ML PEN (1.2MG/DAY), ONCE A DAY
     Route: 065
     Dates: start: 201402, end: 201510

REACTIONS (9)
  - Hyponatraemia [Unknown]
  - Death [Fatal]
  - Pancreatitis acute [Unknown]
  - Pancreatic carcinoma [Unknown]
  - Bile duct obstruction [Recovering/Resolving]
  - Vision blurred [Unknown]
  - Pulmonary mass [Unknown]
  - Anal incontinence [Unknown]
  - Depression [Unknown]

NARRATIVE: CASE EVENT DATE: 201512
